FAERS Safety Report 24050025 (Version 1)
Quarter: 2024Q3

REPORT INFORMATION
  Report Type: Spontaneous
  Country: FR (occurrence: FR)
  Receive Date: 20240704
  Receipt Date: 20240704
  Transmission Date: 20241017
  Serious: Yes (Hospitalization, Other)
  Sender: AUROBINDO
  Company Number: FR-AFSSAPS-AVBX2024000333

PATIENT
  Age: 58 Year
  Sex: Male

DRUGS (1)
  1. OXYCODONE [Suspect]
     Active Substance: OXYCODONE
     Indication: Back pain
     Dosage: 100 MILLIGRAM, ONCE A DAY
     Route: 045
     Dates: start: 2019

REACTIONS (1)
  - Substance use disorder [Recovering/Resolving]

NARRATIVE: CASE EVENT DATE: 20230101
